FAERS Safety Report 7625570-1 (Version None)
Quarter: 2011Q3

REPORT INFORMATION
  Report Type: 
  Country: None (occurrence: None)
  Receive Date: 20110713
  Receipt Date: 20110628
  Transmission Date: 20111222
  Serious: Yes (Death)
  Sender: FDA-Public Use
  Company Number: AUR-APL-2011-03807

PATIENT
  Age: 55 Year
  Sex: Male

DRUGS (4)
  1. DIAZEPAM [Suspect]
     Indication: PRODUCT USED FOR UNKNOWN INDICATION
     Dates: end: 20070101
  2. TRAMADOL HCL [Suspect]
     Indication: PRODUCT USED FOR UNKNOWN INDICATION
     Dates: end: 20070101
  3. METHADONE HCL [Suspect]
     Indication: PRODUCT USED FOR UNKNOWN INDICATION
     Dates: end: 20070101
  4. SERTRALINE HYDROCHLORIDE [Suspect]
     Indication: PRODUCT USED FOR UNKNOWN INDICATION
     Dates: end: 20070101

REACTIONS (10)
  - UNRESPONSIVE TO STIMULI [None]
  - CARDIAC ARREST [None]
  - TOXICITY TO VARIOUS AGENTS [None]
  - CARDIOMEGALY [None]
  - ARTERIOSCLEROSIS CORONARY ARTERY [None]
  - NEEDLE TRACK MARKS [None]
  - PULMONARY CONGESTION [None]
  - PULMONARY OEDEMA [None]
  - COMPLETED SUICIDE [None]
  - RESPIRATORY ARREST [None]
